FAERS Safety Report 7486382-5 (Version None)
Quarter: 2011Q2

REPORT INFORMATION
  Report Type: 
  Country: None (occurrence: None)
  Receive Date: 20110517
  Receipt Date: 20110506
  Transmission Date: 20111010
  Serious: Yes (Hospitalization)
  Sender: FDA-Public Use
  Company Number: US-UCBSA-025979

PATIENT
  Sex: Male
  Weight: 41.9 kg

DRUGS (5)
  1. VIMPAT [Suspect]
     Indication: MYOCLONIC EPILEPSY
     Route: 048
  2. CLOBAZAM [Concomitant]
     Indication: CONVULSION
     Route: 048
  3. PREVACID [Concomitant]
     Indication: GASTROOESOPHAGEAL REFLUX DISEASE
     Dosage: DAILY
     Route: 048
  4. VIMPAT [Suspect]
     Dosage: AFTERNOON
     Route: 048
  5. FELBATOL [Concomitant]
     Indication: CONVULSION
     Route: 048

REACTIONS (2)
  - WRONG TECHNIQUE IN DRUG USAGE PROCESS [None]
  - BURN OESOPHAGEAL [None]
